FAERS Safety Report 13383279 (Version 1)
Quarter: 2017Q1

REPORT INFORMATION
  Report Type: Spontaneous
  Country: US (occurrence: US)
  Receive Date: 20170329
  Receipt Date: 20170329
  Transmission Date: 20170429
  Serious: No
  Sender: FDA-Public Use
  Company Number: US-RISING PHARMACEUTICALS, INC.-2016RIS00180

PATIENT
  Age: 89 Year
  Sex: Female
  Weight: 57.14 kg

DRUGS (11)
  1. OFLOXACIN. [Suspect]
     Active Substance: OFLOXACIN
     Indication: ANTIBIOTIC PROPHYLAXIS
     Dosage: 1 DROP, 1X/HOUR
     Route: 046
     Dates: end: 20161101
  2. OFLOXACIN. [Suspect]
     Active Substance: OFLOXACIN
     Dosage: 1 DROP, 4X/DAY
     Route: 046
     Dates: start: 2016, end: 2016
  3. CHONDROITIN [Concomitant]
     Active Substance: CHONDROITIN
  4. VITAMIN D3 [Concomitant]
     Active Substance: CHOLECALCIFEROL
  5. FISH OIL [Concomitant]
     Active Substance: FISH OIL
  6. EYE INJECTION (UNSPECIFIED) [Concomitant]
  7. IODINE. [Suspect]
     Active Substance: IODINE
     Dosage: UNK
     Dates: start: 20161101, end: 20161101
  8. CALTRATE [Concomitant]
     Active Substance: CALCIUM CARBONATE
  9. VITAMIN E [Concomitant]
     Active Substance: .ALPHA.-TOCOPHEROL
  10. GLUCOSAMINE [Concomitant]
     Active Substance: GLUCOSAMINE
  11. MULTIVITAMIN [Concomitant]
     Active Substance: VITAMINS

REACTIONS (1)
  - Eye irritation [Recovered/Resolved]

NARRATIVE: CASE EVENT DATE: 20161101
